FAERS Safety Report 7724616-X (Version None)
Quarter: 2011Q3

REPORT INFORMATION
  Report Type: 
  Country: None (occurrence: None)
  Receive Date: 20110829
  Receipt Date: 20110819
  Transmission Date: 20111222
  Serious: Yes (Life-Threatening)
  Sender: FDA-Public Use
  Company Number: TCI2011A04506

PATIENT
  Age: 60 Year
  Sex: Male

DRUGS (8)
  1. AMLODIPINE BESYLATE [Concomitant]
  2. JANUVIA [Concomitant]
  3. ARTIST (CARVEDILOL) [Concomitant]
  4. GLYBURIDE [Concomitant]
  5. ACTOS [Suspect]
     Indication: DIABETES MELLITUS
     Dosage: 15 MG (15 MG,1 D) PER ORAL
     Route: 048
     Dates: start: 20051014, end: 20110801
  6. BLOPRESS (CANDESARTAN CILEXETIL) [Concomitant]
  7. BUFFERIN (ACETYLSALICYLIC ACID, MAGNESIUM CARBONATE, ALUMINUIM GLYCINA [Concomitant]
  8. ENALAPRIL MALEATE [Concomitant]

REACTIONS (1)
  - BLADDER CANCER [None]
